FAERS Safety Report 15388761 (Version 3)
Quarter: 2018Q3

REPORT INFORMATION
  Report Type: Spontaneous
  Country: JP (occurrence: JP)
  Receive Date: 20180916
  Receipt Date: 20180916
  Transmission Date: 20181010
  Serious: Yes (Hospitalization)
  Sender: FDA-Public Use
  Company Number: JP-UNICHEM PHARMACEUTICALS (USA) INC-UCM201809-000218

PATIENT
  Age: 48 Year
  Sex: Male

DRUGS (5)
  1. FLUNITRAZEPAM [Concomitant]
     Active Substance: FLUNITRAZEPAM
  2. LORAZEPAM. [Concomitant]
     Active Substance: LORAZEPAM
  3. DIVALPROEX SODIUM. [Suspect]
     Active Substance: DIVALPROEX SODIUM
  4. DIVALPROEX SODIUM. [Suspect]
     Active Substance: DIVALPROEX SODIUM
  5. MAPROTILINE HYDROCHLORIDE. [Concomitant]
     Active Substance: MAPROTILINE HYDROCHLORIDE

REACTIONS (8)
  - Condition aggravated [Recovering/Resolving]
  - Decreased activity [Recovering/Resolving]
  - Lethargy [Recovering/Resolving]
  - Hyperammonaemia [Recovered/Resolved]
  - Apathy [Recovering/Resolving]
  - Depressed level of consciousness [Recovering/Resolving]
  - Cognitive disorder [Recovering/Resolving]
  - Disturbance in attention [Recovering/Resolving]
